FAERS Safety Report 20696070 (Version 2)
Quarter: 2022Q2

REPORT INFORMATION
  Report Type: Spontaneous
  Country: JP (occurrence: JP)
  Receive Date: 20220411
  Receipt Date: 20220426
  Transmission Date: 20220720
  Serious: No
  Sender: FDA-Public Use
  Company Number: JP-UCBJ-CD202202862UCBPHAPROD

PATIENT
  Age: 78 Year
  Sex: Female

DRUGS (1)
  1. VIMPAT [Suspect]
     Active Substance: LACOSAMIDE
     Indication: Focal dyscognitive seizures
     Dosage: (100MG TABLET IN TWO DIVIDED DOSES) 50 MILLIGRAM, 2X/DAY (BID)
     Route: 048
     Dates: start: 20220309

REACTIONS (2)
  - No adverse event [Unknown]
  - Off label use [Unknown]
